FAERS Safety Report 10022423 (Version 5)
Quarter: 2020Q3

REPORT INFORMATION
  Report Type: Spontaneous
  Country: JP (occurrence: JP)
  Receive Date: 20140319
  Receipt Date: 20140611
  Transmission Date: 20201105
  Serious: Yes (Hospitalization, Other)
  Sender: FDA-Public Use
  Company Number: JP-PFIZER INC-2014073977

PATIENT
  Age: 64 Year
  Sex: Male
  Weight: 69 kg

DRUGS (14)
  1. SUTENT [Suspect]
     Active Substance: SUNITINIB MALATE
     Dosage: 25 MG, DAILY (2?DAY ON / 1?DAY OFF).
     Route: 048
     Dates: start: 20140131, end: 20140228
  2. SUTENT [Suspect]
     Active Substance: SUNITINIB MALATE
     Dosage: UNK
     Dates: start: 201403, end: 20140307
  3. MOBIC [Suspect]
     Active Substance: MELOXICAM
     Indication: ANALGESIC THERAPY
     Dosage: 10 MG, 1X/DAY
     Route: 048
     Dates: start: 20130405
  4. METHYCOBAL [Concomitant]
     Active Substance: METHYLCOBALAMIN
     Route: 048
  5. ZOMETA [Concomitant]
     Active Substance: ZOLEDRONIC ACID
     Route: 042
  6. MICARDIS [Suspect]
     Active Substance: TELMISARTAN
     Indication: HYPERTENSION
     Dosage: 80 MG, 1X/DAY
     Route: 048
     Dates: start: 20131204
  7. DIFLAL [Concomitant]
  8. DIOVAN [Concomitant]
     Active Substance: VALSARTAN
     Route: 048
  9. SUTENT [Suspect]
     Active Substance: SUNITINIB MALATE
     Indication: RENAL CELL CARCINOMA
     Dosage: 50 MG, DAILY
     Route: 048
     Dates: start: 20130821, end: 20130903
  10. SUTENT [Suspect]
     Active Substance: SUNITINIB MALATE
     Dosage: 37.5 MG, DAILY (2?DAY ON / 1?DAY OFF)
     Route: 048
     Dates: start: 20130917, end: 20131223
  11. SELBEX [Suspect]
     Active Substance: TEPRENONE
     Indication: PROPHYLAXIS AGAINST GASTROINTESTINAL ULCER
     Dosage: 50 MG, 1X/DAY
     Route: 048
     Dates: start: 20130405
  12. NORVASC [Suspect]
     Active Substance: AMLODIPINE BESYLATE
     Indication: HYPERTENSION
     Dosage: 10 MG, 1X/DAY
     Route: 048
     Dates: start: 20131204
  13. FERROUS SULFATE. [Suspect]
     Active Substance: FERROUS SULFATE
     Indication: ANAEMIA PROPHYLAXIS
     Dosage: 1 DF, 2X/DAY
     Route: 048
     Dates: start: 20131204, end: 20140311
  14. LIOVEL [Concomitant]
     Active Substance: ALOGLIPTIN BENZOATE\PIOGLITAZONE HYDROCHLORIDE
     Route: 048

REACTIONS (11)
  - Weight increased [Recovered/Resolved]
  - Skin lesion [Unknown]
  - Bradycardia [Recovering/Resolving]
  - Renal disorder [Not Recovered/Not Resolved]
  - Renal cell carcinoma [Unknown]
  - Cardiac failure [Recovered/Resolved]
  - Fluid retention [Recovering/Resolving]
  - Dyspnoea [Unknown]
  - Disease progression [Unknown]
  - Anaemia [Unknown]
  - Oedema peripheral [Unknown]

NARRATIVE: CASE EVENT DATE: 20130910
